FAERS Safety Report 20209815 (Version 2)
Quarter: 2022Q1

REPORT INFORMATION
  Report Type: Spontaneous
  Country: US (occurrence: US)
  Receive Date: 20211221
  Receipt Date: 20220316
  Transmission Date: 20220424
  Serious: Yes (Death)
  Sender: FDA-Public Use
  Company Number: US-MTPC-MTDA2021-0030998

PATIENT
  Sex: Female

DRUGS (1)
  1. RADICAVA [Suspect]
     Active Substance: EDARAVONE
     Indication: Amyotrophic lateral sclerosis
     Dosage: 60 MILLIGRAM, QD FOR 14 DAYS
     Route: 042
     Dates: start: 20171113

REACTIONS (11)
  - Amyotrophic lateral sclerosis [Fatal]
  - Aortic aneurysm [Fatal]
  - Gastrointestinal haemorrhage [Fatal]
  - Aphasia [Fatal]
  - Chronic respiratory failure [Fatal]
  - Pneumonia aspiration [Fatal]
  - Deep vein thrombosis [Fatal]
  - Urinary tract infection [Fatal]
  - Fatigue [Unknown]
  - Asthenia [Unknown]
  - Dysarthria [Unknown]
